FAERS Safety Report 5832787-5 (Version None)
Quarter: 2008Q3

REPORT INFORMATION
  Report Type: 
  Country: None (occurrence: None)
  Receive Date: 20080804
  Receipt Date: 20080728
  Transmission Date: 20090109
  Serious: Yes (Hospitalization)
  Sender: FDA-Public Use
  Company Number: FR-PFIZER INC-2008046853

PATIENT
  Sex: Female

DRUGS (2)
  1. XANAX [Suspect]
     Route: 048
  2. EFFEXOR [Suspect]
     Route: 048

REACTIONS (1)
  - SUICIDE ATTEMPT [None]
